FAERS Safety Report 5512420-2 (Version None)
Quarter: 2007Q4

REPORT INFORMATION
  Report Type: 
  Country: None (occurrence: None)
  Receive Date: 20071112
  Receipt Date: 20061016
  Transmission Date: 20080405
  Serious: No
  Sender: FDA-Public Use
  Company Number: A0623738A

PATIENT
  Sex: Female

DRUGS (2)
  1. AVANDAMET [Suspect]
     Indication: DRUG USE FOR UNKNOWN INDICATION
     Route: 048
  2. ASCORBIC ACID [Suspect]
     Indication: PROPHYLAXIS
     Dosage: 1000MG SINGLE DOSE
     Route: 048
     Dates: start: 20061016, end: 20061016

REACTIONS (3)
  - DIARRHOEA [None]
  - DRUG INTERACTION [None]
  - NASOPHARYNGITIS [None]
